FAERS Safety Report 25226674 (Version 1)
Quarter: 2025Q2

REPORT INFORMATION
  Report Type: Spontaneous
  Country: GB (occurrence: GB)
  Receive Date: 20250422
  Receipt Date: 20250422
  Transmission Date: 20250717
  Serious: Yes (Other)
  Sender: ABBVIE
  Company Number: None

PATIENT
  Age: 57 Year
  Sex: Female
  Weight: 80 kg

DRUGS (1)
  1. RISANKIZUMAB [Suspect]
     Active Substance: RISANKIZUMAB
     Indication: Colitis ulcerative
     Route: 058
     Dates: start: 20250205, end: 20250414

REACTIONS (8)
  - Depression [Recovered/Resolved]
  - Abnormal behaviour [Recovering/Resolving]
  - Feeling abnormal [Recovering/Resolving]
  - Mania [Recovered/Resolved]
  - Aggression [Recovered/Resolved]
  - Crying [Recovering/Resolving]
  - Nightmare [Recovering/Resolving]
  - Adverse drug reaction [Recovering/Resolving]

NARRATIVE: CASE EVENT DATE: 20250101
